FAERS Safety Report 24095197 (Version 1)
Quarter: 2024Q3

REPORT INFORMATION
  Report Type: Spontaneous
  Country: DE (occurrence: DE)
  Receive Date: 20240716
  Receipt Date: 20240716
  Transmission Date: 20241016
  Serious: Yes (Other)
  Sender: EXELIXIS
  Company Number: DE-IPSEN Group, Research and Development-2024-13984

PATIENT
  Age: 72 Year
  Sex: Female

DRUGS (4)
  1. CABOMETYX [Suspect]
     Active Substance: CABOZANTINIB S-MALATE
     Indication: Metastatic renal cell carcinoma
     Dosage: UNK
     Route: 065
     Dates: start: 202202
  2. CABOMETYX [Suspect]
     Active Substance: CABOZANTINIB S-MALATE
     Dosage: UNK
     Route: 065
  3. NIVOLUMAB [Suspect]
     Active Substance: NIVOLUMAB
     Indication: Metastatic renal cell carcinoma
     Dosage: UNK
     Dates: start: 202202
  4. NIVOLUMAB [Suspect]
     Active Substance: NIVOLUMAB
     Dosage: UNK

REACTIONS (8)
  - Metastases to adrenals [Unknown]
  - Metastases to bone [Unknown]
  - Adrenal insufficiency [Unknown]
  - Colitis [Unknown]
  - Fatigue [Unknown]
  - Cortisol decreased [Unknown]
  - Blood corticotrophin increased [Unknown]
  - Stomatitis [Unknown]

NARRATIVE: CASE EVENT DATE: 20230201
